FAERS Safety Report 4289490-5 (Version None)
Quarter: 2004Q1

REPORT INFORMATION
  Report Type: 
  Country: None (occurrence: None)
  Receive Date: 20040123
  Receipt Date: 20030301
  Transmission Date: 20041129
  Serious: Yes (Hospitalization)
  Sender: FDA-Public Use
  Company Number: M2003.5522

PATIENT
  Age: 80 Year
  Sex: Male

DRUGS (3)
  1. AMOXICILLIN AND CLAVULANATE POTASSIUM [Suspect]
     Indication: BRONCHITIS ACUTE
     Dosage: 500MG TDS, ORAL
     Route: 048
     Dates: start: 20010630, end: 20010707
  2. ALBUTEROL [Concomitant]
  3. MULTI-VITAMIN [Concomitant]

REACTIONS (6)
  - CLOSTRIDIUM COLITIS [None]
  - DIARRHOEA [None]
  - HEPATITIS [None]
  - HYPERSENSITIVITY [None]
  - PYREXIA [None]
  - RASH [None]
